FAERS Safety Report 17965444 (Version 3)
Quarter: 2020Q3

REPORT INFORMATION
  Report Type: Spontaneous
  Country: AT (occurrence: AT)
  Receive Date: 20200630
  Receipt Date: 20200720
  Transmission Date: 20201103
  Serious: Yes (Life-Threatening, Hospitalization, Other)
  Sender: FDA-Public Use
  Company Number: NVSC2020AT182913

PATIENT
  Age: 66 Year
  Sex: Female
  Weight: 65 kg

DRUGS (8)
  1. CAL D VITA [Concomitant]
     Indication: OSTEOPOROSIS
     Dosage: UNK (5 JAHRE)
     Route: 065
     Dates: start: 2015
  2. LAMOTRIGINE. [Suspect]
     Active Substance: LAMOTRIGINE
     Dosage: 50 MG, Q12H, 2?0?0 (STRENGTH: 50 MG))
     Route: 065
     Dates: end: 20200317
  3. LAMOTRIGINE. [Suspect]
     Active Substance: LAMOTRIGINE
     Dosage: 25 MG, QD, 1?0?1 (STRENGTH: 25 MG)
     Route: 065
  4. PROLIA [Concomitant]
     Active Substance: DENOSUMAB
     Indication: OSTEOPOROSIS
     Dosage: UNK, (5 JAHRE)
     Route: 065
     Dates: start: 2015
  5. QUETIALAN [Concomitant]
     Active Substance: QUETIAPINE FUMARATE
     Indication: INSOMNIA
     Dosage: 100 MG, QD, 0?0?1
     Route: 048
  6. LAMOTRIGINE. [Suspect]
     Active Substance: LAMOTRIGINE
     Dosage: 25 MG, Q12H, 2?0?2 (STRENGTH: 25 MG)
     Route: 065
  7. LAMOTRIGINE. [Suspect]
     Active Substance: LAMOTRIGINE
     Indication: PRODUCT USED FOR UNKNOWN INDICATION
     Dosage: 0.5 DF, QD, 1/2?0?0 (STRENGTH: 25 MG)
     Route: 065
     Dates: start: 20200219
  8. QUETIALAN [Concomitant]
     Active Substance: QUETIAPINE FUMARATE
     Indication: DEPRESSION

REACTIONS (4)
  - Erythema multiforme [Not Recovered/Not Resolved]
  - Corneal exfoliation [Not Recovered/Not Resolved]
  - Oral mucosal blistering [Not Recovered/Not Resolved]
  - Stevens-Johnson syndrome [Recovering/Resolving]

NARRATIVE: CASE EVENT DATE: 20200315
